FAERS Safety Report 6705676-1 (Version None)
Quarter: 2010Q2

REPORT INFORMATION
  Report Type: 
  Country: None (occurrence: None)
  Receive Date: 20100503
  Receipt Date: 20100422
  Transmission Date: 20101027
  Serious: Yes (Hospitalization)
  Sender: FDA-Public Use
  Company Number: US-JNJFOC-20100406672

PATIENT
  Sex: Female
  Weight: 90.72 kg

DRUGS (11)
  1. DURAGESIC-100 [Suspect]
     Indication: PAIN
     Route: 062
  2. DURAGESIC-100 [Suspect]
     Route: 062
  3. DURAGESIC-100 [Suspect]
     Route: 062
  4. CELEBREX [Concomitant]
     Indication: ARTHRITIS
     Route: 048
  5. LYRICA [Concomitant]
     Indication: FIBROMYALGIA
     Route: 048
  6. LISINOPRIL [Concomitant]
     Indication: BLOOD PRESSURE
     Route: 048
  7. HYDROCODONE BITARTRATE [Concomitant]
     Indication: INTERVERTEBRAL DISC PROTRUSION
     Dosage: 10/650 - ONE EVERY SIX HOURS AS NEEDED
     Route: 048
  8. HYDROCODONE BITARTRATE [Concomitant]
     Indication: BACK PAIN
     Dosage: 10/650 - ONE EVERY SIX HOURS AS NEEDED
     Route: 048
  9. ZOLPIDEM [Concomitant]
     Indication: SLEEP DISORDER THERAPY
     Dosage: 10/650 - ONE EVERY SIX HOURS AS NEEDED
     Route: 048
  10. PHENERGAN [Concomitant]
     Indication: NAUSEA
     Dosage: 10/650 - ONE EVERY SIX HOURS AS NEEDED
     Route: 048
  11. MANY OTHER UNSPECIFIED MEDICATIONS [Concomitant]
     Dosage: 10/650 - ONE EVERY SIX HOURS AS NEEDED
     Route: 065

REACTIONS (4)
  - CROHN'S DISEASE [None]
  - DRUG ADMINISTERED AT INAPPROPRIATE SITE [None]
  - MUSCLE SPASMS [None]
  - SMALL INTESTINAL OBSTRUCTION [None]
